FAERS Safety Report 5743631-9 (Version None)
Quarter: 2008Q2

REPORT INFORMATION
  Report Type: 
  Country: None (occurrence: None)
  Receive Date: 20080515
  Receipt Date: 20070904
  Transmission Date: 20081010
  Serious: Yes (Hospitalization)
  Sender: FDA-Public Use
  Company Number: WAES 0709USA02025

PATIENT
  Age: 65 Year
  Sex: Male

DRUGS (1)
  1. HYDRODIURIL [Suspect]
     Dosage: 12.5 MG/DAILY/PO
     Route: 048

REACTIONS (1)
  - PANCREATITIS ACUTE [None]
